FAERS Safety Report 7758818-3 (Version None)
Quarter: 2011Q3

REPORT INFORMATION
  Report Type: 
  Country: None (occurrence: None)
  Receive Date: 20110825
  Receipt Date: 20110613
  Transmission Date: 20111222
  Serious: Yes (Hospitalization, Other)
  Sender: FDA-Public Use
  Company Number: 327883

PATIENT
  Age: 59 Year
  Sex: Male
  Weight: 115.6 kg

DRUGS (8)
  1. VICODIN [Concomitant]
  2. BENAZEPRIL HYDROCHLORIDE [Concomitant]
  3. METFORMIN HCL [Concomitant]
  4. VICTOZA [Suspect]
     Indication: TYPE 2 DIABETES MELLITUS
     Dosage: 1.2 MG, QD, SUBCUTANEOUS
     Route: 058
     Dates: start: 20100801, end: 20110501
  5. METOPROLOL TARTRATE [Concomitant]
  6. NORVASC [Concomitant]
  7. SENOKOT /00142201/ (SENNA ALEXANDRINA) [Concomitant]
  8. SIMVASTATIN [Concomitant]

REACTIONS (2)
  - PANCREATITIS [None]
  - RENAL FAILURE ACUTE [None]
